FAERS Safety Report 8789549 (Version 1)
Quarter: 2012Q4

REPORT INFORMATION
  Report Type: Spontaneous
  Country: US (occurrence: None)
  Receive Date: 20120910
  Receipt Date: 20120910
  Transmission Date: 20130627
  Serious: Yes (Life-Threatening, Hospitalization, Disabling)
  Sender: FDA-Public Use
  Company Number: None

PATIENT
  Age: 41 Year
  Sex: Male
  Weight: 163 kg

DRUGS (1)
  1. BACTRIM DS [Suspect]

REACTIONS (7)
  - Conjunctivitis [None]
  - Pharyngeal inflammation [None]
  - Toxic epidermal necrolysis [None]
  - Respiratory failure [None]
  - Sepsis [None]
  - Disease complication [None]
  - Blindness [None]
